FAERS Safety Report 19838161 (Version 5)
Quarter: 2021Q4

REPORT INFORMATION
  Report Type: Other
  Country: US (occurrence: None)
  Receive Date: 20210916
  Receipt Date: 20211224
  Transmission Date: 20220303
  Serious: Yes (Hospitalization)
  Sender: FDA-Public Use
  Company Number: US-ROCHE-2909898

PATIENT
  Sex: Female
  Weight: 109.41 kg

DRUGS (2)
  1. OCREVUS [Suspect]
     Active Substance: OCRELIZUMAB
     Indication: Relapsing multiple sclerosis
     Dosage: 2 VIALS DATE OF TREATMENT WAS: 12/FEB/2021, 28/AUG/2021, 13/MAR/2021, 27/SEP/2021, 12/APR/2021, 05/J
     Route: 042
     Dates: start: 20180705, end: 202102
  2. OCREVUS [Suspect]
     Active Substance: OCRELIZUMAB
     Indication: Multiple sclerosis
     Route: 042

REACTIONS (3)
  - COVID-19 [Recovered/Resolved]
  - Thrombosis [Recovered/Resolved]
  - Gangrene [Recovered/Resolved]

NARRATIVE: CASE EVENT DATE: 20210101
